FAERS Safety Report 7713412-5 (Version None)
Quarter: 2011Q3

REPORT INFORMATION
  Report Type: 
  Country: None (occurrence: None)
  Receive Date: 20110826
  Receipt Date: 20110818
  Transmission Date: 20111222
  Serious: No
  Sender: FDA-Public Use
  Company Number: IL-BRISTOL-MYERS SQUIBB COMPANY-15962285

PATIENT
  Age: 52 Year
  Sex: Female

DRUGS (3)
  1. ERBITUX [Suspect]
     Indication: NON-SMALL CELL LUNG CANCER
     Dosage: INFUSION 1. 5MG/ML.
     Route: 042
     Dates: start: 20090708
  2. GEMCITABINE [Suspect]
     Indication: NON-SMALL CELL LUNG CANCER
     Dosage: DAY 1,8 OF 21 DAYS CYCLE
     Route: 042
     Dates: start: 20090708
  3. CISPLATIN [Suspect]
     Indication: NON-SMALL CELL LUNG CANCER
     Dosage: DAY 1 OF 21 DAYS
     Route: 042
     Dates: start: 20090708, end: 20090930

REACTIONS (1)
  - THROMBOCYTOPENIA [None]
